FAERS Safety Report 8157499-7 (Version None)
Quarter: 2012Q1

REPORT INFORMATION
  Report Type: 
  Country: None (occurrence: None)
  Receive Date: 20120222
  Receipt Date: 20120208
  Transmission Date: 20120608
  Serious: Yes (Other)
  Sender: FDA-Public Use
  Company Number: CHPA2012US001920

PATIENT
  Age: 52 Year
  Sex: Male

DRUGS (1)
  1. EXCEDRIN EXTRA STRENGTH TABLETS [Suspect]
     Indication: HEADACHE
     Dosage: 2 DF, PRN
     Route: 048

REACTIONS (1)
  - GASTRIC HAEMORRHAGE [None]
